FAERS Safety Report 8021472-X (Version None)
Quarter: 2011Q4

REPORT INFORMATION
  Report Type: 
  Country: None (occurrence: None)
  Receive Date: 20111229
  Receipt Date: 20111214
  Transmission Date: 20120403
  Serious: Yes (Death, Hospitalization)
  Sender: FDA-Public Use
  Company Number: JP-20110039

PATIENT
  Age: 78 Year
  Sex: Male

DRUGS (4)
  1. ANHYDROUS ETHANOL (ANHYDROUS ETHANOL) [Suspect]
     Indication: PERCUTANEOUS ETHANOL INJECTION THERAPY
     Dosage: 13 ML (13 ML. 1 IN 1 D), TRANSDERMAL
     Route: 062
     Dates: start: 20060601, end: 20060601
  2. MITOMYCIN [Suspect]
     Indication: REGIONAL CHEMOTHERAPY
     Dosage: 6 MG (6 MG, 1 IN 1 D), INTRA-ARTERIAL
     Route: 013
     Dates: start: 20060601, end: 20060601
  3. LIPIODOL ULTRA [Suspect]
     Indication: CHEMOTHERAPY
     Dosage: 3 ML (3 ML, 1 IN -2), INTRA-ARTERIAL
     Route: 013
     Dates: start: 20060601
  4. EPIRUBICIN HYDROCHLORIDE [Suspect]
     Indication: CHEMOTHERAPY
     Dosage: 30 MG (30 MG, 1 IN 1 D), INTRA-ARTERIAL
     Route: 013
     Dates: start: 20060601, end: 20060601

REACTIONS (4)
  - TUMOUR THROMBOSIS [None]
  - NEOPLASM PROGRESSION [None]
  - OFF LABEL USE [None]
  - HEPATIC NEOPLASM MALIGNANT [None]
